FAERS Safety Report 10093139 (Version 1)
Quarter: 2014Q2

REPORT INFORMATION
  Report Type: Spontaneous
  Country: US (occurrence: US)
  Receive Date: 20140421
  Receipt Date: 20140421
  Transmission Date: 20141212
  Serious: No
  Sender: FDA-Public Use
  Company Number: US-SANOFI-AVENTIS-2013SA093634

PATIENT
  Age: 64 Year
  Sex: Female
  Weight: 76.2 kg

DRUGS (1)
  1. ALLEGRA [Suspect]
     Indication: RHINITIS ALLERGIC
     Route: 048
     Dates: start: 20130907, end: 20130913

REACTIONS (3)
  - Abdominal pain upper [Unknown]
  - Back pain [Unknown]
  - Headache [Unknown]
